FAERS Safety Report 9815026 (Version 3)
Quarter: 2014Q2

REPORT INFORMATION
  Report Type: Spontaneous
  Country: DE (occurrence: DE)
  Receive Date: 20140114
  Receipt Date: 20140408
  Transmission Date: 20141212
  Serious: Yes (Other)
  Sender: FDA-Public Use
  Company Number: DE-ROCHE-1332097

PATIENT
  Sex: Female

DRUGS (6)
  1. MABTHERA [Suspect]
     Indication: B-CELL LYMPHOMA
     Dosage: 6 CYCLES
     Route: 065
     Dates: start: 201301, end: 201307
  2. MABTHERA [Suspect]
     Route: 065
     Dates: start: 201307
  3. MABTHERA [Suspect]
     Dosage: 3 SINGLE ADMINISTRATIONS
     Route: 065
     Dates: start: 201308, end: 201311
  4. MABTHERA [Suspect]
     Route: 065
     Dates: start: 20140127
  5. BENDAMUSTINE [Concomitant]
     Indication: B-CELL LYMPHOMA
     Dosage: 6 CYCLES
     Route: 065
     Dates: start: 201301, end: 201306
  6. PHENPROCOUMON [Concomitant]
     Route: 065

REACTIONS (5)
  - Ischaemic cerebral infarction [Unknown]
  - Malignant neoplasm progression [Unknown]
  - Diverticulum intestinal [Unknown]
  - Cholelithiasis [Unknown]
  - Spinal disorder [Unknown]
